FAERS Safety Report 14195115 (Version 1)
Quarter: 2017Q4

REPORT INFORMATION
  Report Type: Spontaneous
  Country: US (occurrence: US)
  Receive Date: 20171116
  Receipt Date: 20171116
  Transmission Date: 20180321
  Serious: No
  Sender: FDA-Public Use
  Company Number: US-ASTRAZENECA-2017SF16404

PATIENT
  Age: 70 Year
  Sex: Male
  Weight: 68.9 kg

DRUGS (6)
  1. TRAZODONE [Concomitant]
     Active Substance: TRAZODONE HYDROCHLORIDE
     Indication: INSOMNIA
     Route: 048
  2. BYDUREON [Suspect]
     Active Substance: EXENATIDE
     Indication: HYPERGLYCAEMIA
     Route: 058
  3. PROTONIX [Concomitant]
     Active Substance: PANTOPRAZOLE SODIUM
     Indication: GASTROOESOPHAGEAL REFLUX DISEASE
     Route: 048
  4. BABY ASPIRIN [Concomitant]
     Active Substance: ASPIRIN
     Indication: ILL-DEFINED DISORDER
     Dosage: MG, DAILY
     Route: 048
  5. ZOLOFT [Concomitant]
     Active Substance: SERTRALINE HYDROCHLORIDE
     Indication: DEPRESSION
     Route: 048
  6. AMANTADINE. [Concomitant]
     Active Substance: AMANTADINE HYDROCHLORIDE
     Indication: NERVOUS SYSTEM DISORDER
     Route: 048

REACTIONS (1)
  - Injection site induration [Not Recovered/Not Resolved]

NARRATIVE: CASE EVENT DATE: 2017
